FAERS Safety Report 19804347 (Version 1)
Quarter: 2021Q3

REPORT INFORMATION
  Report Type: Spontaneous
  Country: US (occurrence: US)
  Receive Date: 20210908
  Receipt Date: 20210908
  Transmission Date: 20211014
  Serious: No
  Sender: FDA-Public Use
  Company Number: US-FARMAPROD-202105-0767

PATIENT
  Sex: Male

DRUGS (24)
  1. FISH OIL [Concomitant]
     Active Substance: FISH OIL
     Dosage: 100?150 MG
  2. MAGNESIUM [Concomitant]
     Active Substance: MAGNESIUM
  3. LEVOXYL [Concomitant]
     Active Substance: LEVOTHYROXINE SODIUM
  4. THERATEARS [Concomitant]
     Active Substance: CARBOXYMETHYLCELLULOSE SODIUM
     Dosage: DROPERETTE
  5. OXERVATE [Suspect]
     Active Substance: CENEGERMIN-BKBJ
     Indication: HYPOAESTHESIA EYE
     Route: 047
     Dates: start: 20210429
  6. VITAMINE C [Concomitant]
     Active Substance: ASCORBIC ACID
  7. NIACINAMIDE [Concomitant]
     Active Substance: NIACINAMIDE
  8. DOXYCYCLINE HYCLATE. [Concomitant]
     Active Substance: DOXYCYCLINE HYCLATE
  9. OMEPRAZOLE AND SODIUM BICARBONATE [Concomitant]
     Active Substance: OMEPRAZOLE\SODIUM BICARBONATE
  10. LOSARTAN/HYDROCHLOROTHIAZIDE [Concomitant]
     Active Substance: HYDROCHLOROTHIAZIDE\LOSARTAN
  11. PENTOXIFYLLINE. [Concomitant]
     Active Substance: PENTOXIFYLLINE
  12. TOBRADEX [Concomitant]
     Active Substance: DEXAMETHASONE\TOBRAMYCIN
     Dosage: 0.3 %?0.1%
  13. PREDNISONE. [Concomitant]
     Active Substance: PREDNISONE
     Dosage: DOUBLE STRENGTH PACKET
  14. CENTRUM ADULT 50 FRESH/FRUITY [Concomitant]
  15. MELOXICAM. [Concomitant]
     Active Substance: MELOXICAM
  16. TRAMADOL HCL [Concomitant]
     Active Substance: TRAMADOL HYDROCHLORIDE
  17. TYLENOL ARTHRITIS PAIN [Concomitant]
     Active Substance: ACETAMINOPHEN
     Dosage: EXTENDED RELEASE TABLET
  18. SIMVASTATIN. [Concomitant]
     Active Substance: SIMVASTATIN
  19. OXERVATE [Suspect]
     Active Substance: CENEGERMIN-BKBJ
     Indication: NEUROTROPHIC KERATOPATHY
  20. ZYRTEC [Concomitant]
     Active Substance: CETIRIZINE HYDROCHLORIDE
  21. VOLTAREN [Concomitant]
     Active Substance: DICLOFENAC SODIUM
  22. CYCLOBENZAPRINE HCL [Concomitant]
     Active Substance: CYCLOBENZAPRINE HYDROCHLORIDE
  23. CALCIUM/VITAMINE D3 [Concomitant]
     Dosage: 600MG?12.5 MG EXTENDED RELEASED TABLET
  24. TESTOSTERONE CYPIONATE. [Concomitant]
     Active Substance: TESTOSTERONE CYPIONATE

REACTIONS (1)
  - Product dose omission issue [Unknown]
